FAERS Safety Report 4382859-X (Version None)
Quarter: 2004Q2

REPORT INFORMATION
  Report Type: 
  Country: None (occurrence: None)
  Receive Date: 20040617
  Receipt Date: 20040608
  Transmission Date: 20050107
  Serious: Yes (Death)
  Sender: FDA-Public Use
  Company Number: US-JNJFOC-20040404957

PATIENT
  Age: 82 Year
  Sex: Male

DRUGS (8)
  1. DURAGESIC [Suspect]
     Indication: PAIN
     Dosage: 50 UG/HR, 1 IN 72 HOUR, TRANSDERMAL
     Route: 062
     Dates: start: 20040329, end: 20040402
  2. ENALAPRIL MALEATE [Concomitant]
  3. QUALNINE (QUININE) [Concomitant]
  4. LIPITOR [Concomitant]
  5. NEPHRO-CAP (NEPHROCAPS) [Concomitant]
  6. PRILOSEC [Concomitant]
  7. STOOL SOFTENER (DOCUSATE SODIUM) [Concomitant]
  8. ALLOPURINOL [Concomitant]

REACTIONS (1)
  - AORTIC ANEURYSM RUPTURE [None]
